FAERS Safety Report 11830104 (Version 8)
Quarter: 2017Q3

REPORT INFORMATION
  Report Type: Report from Study
  Country: JP (occurrence: JP)
  Receive Date: 20151214
  Receipt Date: 20170717
  Transmission Date: 20171127
  Serious: Yes (Hospitalization, Other)
  Sender: FDA-Public Use
  Company Number: JP-ROCHE-1675602

PATIENT
  Age: 14 Year
  Sex: Male
  Weight: 51 kg

DRUGS (67)
  1. PREDNISOLONE. [Suspect]
     Active Substance: PREDNISOLONE
     Route: 048
     Dates: start: 20151006, end: 20151016
  2. METHYLPREDNISOLONE SODIUM SUCCINATE. [Suspect]
     Active Substance: METHYLPREDNISOLONE SODIUM SUCCINATE
     Route: 042
     Dates: start: 20151118, end: 20151120
  3. MYCOPHENOLATE MOFETIL. [Suspect]
     Active Substance: MYCOPHENOLATE MOFETIL
     Route: 048
     Dates: start: 20151118, end: 20151130
  4. MYCOPHENOLATE MOFETIL. [Suspect]
     Active Substance: MYCOPHENOLATE MOFETIL
     Route: 048
     Dates: start: 20151201
  5. POLARAMINE [Concomitant]
     Active Substance: DEXCHLORPHENIRAMINE MALEATE
     Indication: PREMEDICATION
     Route: 048
     Dates: start: 20150519, end: 20150519
  6. ROZEREM [Concomitant]
     Active Substance: RAMELTEON
     Route: 048
     Dates: start: 20151123, end: 20160125
  7. RITUXIMAB. [Suspect]
     Active Substance: RITUXIMAB
     Dosage: FOURTH DOSE OF RITUXIMAB?INITIAL INFUSION RATE OF 25 MG/H AND THE MAXIMUM OF 200 MG/H
     Route: 041
     Dates: start: 20160728, end: 20160728
  8. CICLOSPORIN [Suspect]
     Active Substance: CYCLOSPORINE
     Indication: NEPHROTIC SYNDROME
     Route: 048
     Dates: start: 20120804, end: 20150926
  9. METHYLPREDNISOLONE SODIUM SUCCINATE. [Suspect]
     Active Substance: METHYLPREDNISOLONE SODIUM SUCCINATE
     Dosage: 125 MG/24 HOURS
     Route: 042
     Dates: start: 20160210, end: 20160210
  10. LISPRO INSULIN [Suspect]
     Active Substance: INSULIN LISPRO
     Indication: DIABETES MELLITUS
     Route: 058
     Dates: start: 20151201, end: 20151202
  11. DIAMOX SEQUELS [Concomitant]
     Active Substance: ACETAZOLAMIDE
     Indication: GLAUCOMA
     Route: 048
     Dates: start: 20151026, end: 20151102
  12. SEPAMIT-R [Concomitant]
     Active Substance: NIFEDIPINE
     Route: 048
     Dates: start: 20151122, end: 20151228
  13. POTASSIUM L-ASPARTATE [Concomitant]
     Active Substance: POTASSIUM ASPARTATE ANHYDROUS
     Dosage: 900 TO 1800 MG
     Route: 048
     Dates: start: 20151121, end: 20151208
  14. CICLOSPORIN [Suspect]
     Active Substance: CYCLOSPORINE
     Route: 048
     Dates: start: 20160119, end: 20170414
  15. METHYLPREDNISOLONE SODIUM SUCCINATE. [Suspect]
     Active Substance: METHYLPREDNISOLONE SODIUM SUCCINATE
     Route: 042
     Dates: start: 20151112, end: 20151114
  16. LISPRO INSULIN [Suspect]
     Active Substance: INSULIN LISPRO
     Route: 058
     Dates: start: 20151214, end: 20160127
  17. LISPRO INSULIN [Suspect]
     Active Substance: INSULIN LISPRO
     Route: 058
     Dates: start: 20160128, end: 20160202
  18. POLARAMINE [Concomitant]
     Active Substance: DEXCHLORPHENIRAMINE MALEATE
     Route: 048
     Dates: start: 20151125, end: 20151125
  19. CALONAL [Concomitant]
     Active Substance: ACETAMINOPHEN
     Route: 048
     Dates: start: 20170117, end: 20170117
  20. REBAMIPIDE [Concomitant]
     Active Substance: REBAMIPIDE
     Route: 048
     Dates: start: 20151019, end: 20151109
  21. OMEPRAL [Concomitant]
     Active Substance: OMEPRAZOLE
     Route: 048
     Dates: start: 20151028, end: 20151030
  22. BACTRAMIN [Concomitant]
     Active Substance: SULFAMETHOXAZOLE\TRIMETHOPRIM
     Route: 048
     Dates: start: 20151124
  23. PAXIL [Concomitant]
     Active Substance: PAROXETINE HYDROCHLORIDE
     Route: 048
     Dates: start: 20151130, end: 20160119
  24. ALFAROL [Concomitant]
     Active Substance: ALFACALCIDOL
     Route: 048
     Dates: start: 20151222
  25. PREDNISOLONE. [Suspect]
     Active Substance: PREDNISOLONE
     Route: 048
     Dates: start: 20150905, end: 20151005
  26. PREDNISOLONE. [Suspect]
     Active Substance: PREDNISOLONE
     Route: 048
     Dates: start: 20151017, end: 20151018
  27. METHYLPREDNISOLONE SODIUM SUCCINATE. [Suspect]
     Active Substance: METHYLPREDNISOLONE SODIUM SUCCINATE
     Dosage: 125 MG/24 HOURS
     Route: 042
     Dates: start: 20160728, end: 20160728
  28. SEPAMIT-R [Concomitant]
     Active Substance: NIFEDIPINE
     Route: 048
     Dates: start: 20151121, end: 20151121
  29. MAGNESIUM OXIDE. [Concomitant]
     Active Substance: MAGNESIUM OXIDE
     Dosage: 1500 TO 500 MG
     Route: 048
     Dates: start: 20151123
  30. LULLAN [Concomitant]
     Active Substance: PEROSPIRONE HYDROCHLORIDE
     Dosage: 4 TO 8 MG
     Route: 048
     Dates: start: 20151123, end: 20160119
  31. MIYA-BM [Concomitant]
     Active Substance: CLOSTRIDIUM BUTYRICUM SPORES STRAIN M-55
     Indication: GASTROENTERITIS
     Route: 048
     Dates: start: 20160116, end: 20160203
  32. RITUXIMAB. [Suspect]
     Active Substance: RITUXIMAB
     Indication: NEPHROTIC SYNDROME
     Dosage: AT THE INITIAL INFUSION RATE OF 25 MG/H AND THE MAXIMUM RATE OF 200 MG/H
     Route: 041
     Dates: start: 20150519, end: 20150519
  33. RITUXIMAB. [Suspect]
     Active Substance: RITUXIMAB
     Dosage: FIFTH DOSE OF RITUXIMAB?INITIAL INFUSION RATE OF 25 MG/H AND THE MAXIMUM OF 200 MG/H
     Route: 041
     Dates: start: 20170117, end: 20170117
  34. CICLOSPORIN [Suspect]
     Active Substance: CYCLOSPORINE
     Route: 048
     Dates: start: 20170415, end: 20170512
  35. CICLOSPORIN [Suspect]
     Active Substance: CYCLOSPORINE
     Route: 048
     Dates: start: 20170513
  36. PREDNISOLONE. [Suspect]
     Active Substance: PREDNISOLONE
     Indication: NEPHROTIC SYNDROME
     Route: 048
     Dates: start: 20150330, end: 20150410
  37. INSULIN [Suspect]
     Active Substance: INSULIN NOS
     Indication: PRODUCT USED FOR UNKNOWN INDICATION
     Route: 065
     Dates: start: 20151114, end: 20160202
  38. POLARAMINE [Concomitant]
     Active Substance: DEXCHLORPHENIRAMINE MALEATE
     Route: 048
     Dates: start: 20160210, end: 20160210
  39. CALONAL [Concomitant]
     Active Substance: ACETAMINOPHEN
     Indication: PREMEDICATION
     Route: 048
     Dates: start: 20150519, end: 20150519
  40. ATARAX-P [Concomitant]
     Active Substance: HYDROXYZINE HYDROCHLORIDE
     Indication: PREMEDICATION
     Route: 042
     Dates: start: 20151125, end: 20151125
  41. MIZORIBINE [Concomitant]
     Active Substance: MIZORIBINE
     Indication: NEPHROTIC SYNDROME
     Route: 048
     Dates: start: 20140528, end: 201411
  42. LONGES [Concomitant]
     Active Substance: LISINOPRIL
     Route: 048
     Dates: start: 20151208, end: 20160129
  43. PREDNISOLONE. [Suspect]
     Active Substance: PREDNISOLONE
     Route: 042
     Dates: start: 20151019, end: 20160127
  44. METHYLPREDNISOLONE SODIUM SUCCINATE. [Suspect]
     Active Substance: METHYLPREDNISOLONE SODIUM SUCCINATE
     Indication: NEPHROTIC SYNDROME
     Route: 042
     Dates: start: 20151026, end: 20151028
  45. SEPAMIT-R [Concomitant]
     Active Substance: NIFEDIPINE
     Route: 048
     Dates: start: 20151229, end: 20160104
  46. RITUXIMAB. [Suspect]
     Active Substance: RITUXIMAB
     Dosage: AT THE INITIAL INFUSION RATE OF 100 MG/H AND THE MAXIMUM RATE OF 200 MG/H.
     Route: 041
     Dates: start: 20151125, end: 20151125
  47. PREDNISOLONE. [Suspect]
     Active Substance: PREDNISOLONE
     Route: 048
     Dates: start: 20150411, end: 20150509
  48. MYCOPHENOLATE MOFETIL. [Suspect]
     Active Substance: MYCOPHENOLATE MOFETIL
     Indication: NEPHROTIC SYNDROME
     Route: 048
     Dates: start: 20151113, end: 20151117
  49. CALONAL [Concomitant]
     Active Substance: ACETAMINOPHEN
     Route: 048
     Dates: start: 20151125, end: 20151125
  50. CALONAL [Concomitant]
     Active Substance: ACETAMINOPHEN
     Route: 048
     Dates: start: 20160728, end: 20160728
  51. GASTER [Concomitant]
     Active Substance: FAMOTIDINE
     Route: 048
     Dates: start: 20151019, end: 20151026
  52. OMEPRAL [Concomitant]
     Active Substance: OMEPRAZOLE
     Route: 048
     Dates: start: 20151031, end: 20151124
  53. BACTRAMIN [Concomitant]
     Active Substance: SULFAMETHOXAZOLE\TRIMETHOPRIM
     Indication: PNEUMOCYSTIS JIROVECII PNEUMONIA
     Route: 048
     Dates: start: 20151113, end: 20151124
  54. DENOSINE (JAPAN) [Concomitant]
     Active Substance: GANCICLOVIR
     Route: 041
     Dates: start: 20151207, end: 20151221
  55. VALIXA [Concomitant]
     Active Substance: VALGANCICLOVIR
     Route: 048
     Dates: start: 20151222, end: 20160126
  56. RITUXIMAB. [Suspect]
     Active Substance: RITUXIMAB
     Dosage: AT THE INITIAL INFUSION RATE OF 100 MG/H AND THE MAXIMUM RATE OF 200 MG/H
     Route: 041
     Dates: start: 20160210, end: 20160210
  57. CICLOSPORIN [Suspect]
     Active Substance: CYCLOSPORINE
     Route: 048
     Dates: start: 20151104, end: 20151130
  58. CICLOSPORIN [Suspect]
     Active Substance: CYCLOSPORINE
     Route: 048
     Dates: start: 20151201, end: 20160118
  59. METHYLPREDNISOLONE SODIUM SUCCINATE. [Suspect]
     Active Substance: METHYLPREDNISOLONE SODIUM SUCCINATE
     Dosage: 125 MG/24 HOURS
     Route: 042
     Dates: start: 20170117, end: 20170117
  60. LISPRO INSULIN [Suspect]
     Active Substance: INSULIN LISPRO
     Route: 058
     Dates: start: 20151203, end: 20151213
  61. POLARAMINE [Concomitant]
     Active Substance: DEXCHLORPHENIRAMINE MALEATE
     Route: 048
     Dates: start: 20160728, end: 20160728
  62. POLARAMINE [Concomitant]
     Active Substance: DEXCHLORPHENIRAMINE MALEATE
     Route: 048
     Dates: start: 20170117, end: 20170117
  63. CALONAL [Concomitant]
     Active Substance: ACETAMINOPHEN
     Route: 048
     Dates: start: 20160210, end: 20160210
  64. DIAMOX SEQUELS [Concomitant]
     Active Substance: ACETAZOLAMIDE
     Route: 048
     Dates: start: 20151103, end: 20151201
  65. SEPAMIT-R [Concomitant]
     Active Substance: NIFEDIPINE
     Indication: HYPERTENSION
     Route: 048
     Dates: start: 20151020, end: 20151120
  66. TAKEPRON [Concomitant]
     Active Substance: LANSOPRAZOLE
     Route: 048
     Dates: start: 20151124, end: 20160224
  67. LONGES [Concomitant]
     Active Substance: LISINOPRIL
     Indication: HYPERTENSION
     Route: 048
     Dates: start: 20151201, end: 20151207

REACTIONS (13)
  - Schizophrenia [Recovered/Resolved]
  - Orthostatic intolerance [Recovering/Resolving]
  - Acute kidney injury [Recovered/Resolved]
  - Osteoporosis [Recovering/Resolving]
  - Insomnia [Recovered/Resolved]
  - Hypokalaemia [Recovering/Resolving]
  - Glucose tolerance impaired [Recovered/Resolved]
  - Encephalopathy [Recovered/Resolved]
  - Pyrexia [Recovered/Resolved]
  - Constipation [Recovering/Resolving]
  - Cytomegalovirus infection [Recovered/Resolved]
  - Hypomagnesaemia [Recovered/Resolved]
  - Blood creatine phosphokinase increased [Recovered/Resolved]

NARRATIVE: CASE EVENT DATE: 20151019
